FAERS Safety Report 25637246 (Version 1)
Quarter: 2025Q3

REPORT INFORMATION
  Report Type: Spontaneous
  Country: EU (occurrence: EU)
  Receive Date: 20250804
  Receipt Date: 20250804
  Transmission Date: 20251021
  Serious: Yes (Other)
  Sender: AUROBINDO
  Company Number: EU-AFSSAPS-MP2025001016

PATIENT
  Age: 58 Year
  Sex: Female
  Weight: 63 kg

DRUGS (5)
  1. DIAZEPAM [Suspect]
     Active Substance: DIAZEPAM
     Indication: Mixed anxiety and depressive disorder
     Route: 048
     Dates: end: 20250614
  2. DIAZEPAM [Suspect]
     Active Substance: DIAZEPAM
     Dosage: 15 MILLIGRAM, ONCE A DAY
     Route: 048
     Dates: start: 20250615, end: 20250625
  3. TEGRETOL [Suspect]
     Active Substance: CARBAMAZEPINE
     Indication: Bipolar II disorder
     Dosage: 1200 MILLIGRAM, ONCE A DAY
     Route: 048
     Dates: start: 202506, end: 20250703
  4. ALCOHOL [Suspect]
     Active Substance: ALCOHOL
     Indication: Product used for unknown indication
     Route: 048
     Dates: end: 20250614
  5. ALCOHOL [Suspect]
     Active Substance: ALCOHOL
     Dosage: 6 ARBITRARY UNITS, ONCE A DAY
     Route: 048
     Dates: start: 20250615, end: 20250625

REACTIONS (1)
  - Hepatocellular injury [Recovering/Resolving]

NARRATIVE: CASE EVENT DATE: 20250625
